FAERS Safety Report 17430734 (Version 1)
Quarter: 2020Q1

REPORT INFORMATION
  Report Type: Spontaneous
  Country: US (occurrence: US)
  Receive Date: 20200218
  Receipt Date: 20200218
  Transmission Date: 20200409
  Serious: No
  Sender: FDA-Public Use
  Company Number: US-BIOCODEX SA-202000043

PATIENT
  Sex: Female

DRUGS (8)
  1. CLONIDINE HYDROCHLORIDE. [Concomitant]
     Active Substance: CLONIDINE HYDROCHLORIDE
     Indication: PRODUCT USED FOR UNKNOWN INDICATION
     Route: 065
  2. EPIDIOLEX [Concomitant]
     Active Substance: CANNABIDIOL
     Indication: PRODUCT USED FOR UNKNOWN INDICATION
     Route: 065
  3. ONFI [Concomitant]
     Active Substance: CLOBAZAM
     Indication: SEVERE MYOCLONIC EPILEPSY OF INFANCY
     Route: 065
  4. MELATONIN [Concomitant]
     Active Substance: MELATONIN
     Indication: PRODUCT USED FOR UNKNOWN INDICATION
     Route: 065
  5. DEPAKOTE [Concomitant]
     Active Substance: DIVALPROEX SODIUM
     Indication: PRODUCT USED FOR UNKNOWN INDICATION
     Route: 065
  6. CARNITOR [Concomitant]
     Active Substance: LEVOCARNITINE
     Indication: PRODUCT USED FOR UNKNOWN INDICATION
     Route: 065
  7. DIACOMIT [Suspect]
     Active Substance: STIRIPENTOL
     Indication: SEVERE MYOCLONIC EPILEPSY OF INFANCY
     Dosage: 250 MG THREE TIMES DAILY
     Route: 065
     Dates: start: 20190607
  8. DIASTAT [Concomitant]
     Active Substance: DIAZEPAM
     Indication: PRODUCT USED FOR UNKNOWN INDICATION
     Route: 065

REACTIONS (2)
  - Product dose omission [Unknown]
  - Malaise [Unknown]
